FAERS Safety Report 13360071 (Version 1)
Quarter: 2017Q1

REPORT INFORMATION
  Report Type: Spontaneous
  Country: DE (occurrence: DE)
  Receive Date: 20170322
  Receipt Date: 20170322
  Transmission Date: 20170429
  Serious: Yes (Disabling)
  Sender: FDA-Public Use
  Company Number: PHHY2017DE038831

PATIENT
  Age: 51 Year
  Sex: Female
  Weight: 105 kg

DRUGS (8)
  1. FOLSAN [Concomitant]
     Active Substance: FOLIC ACID
     Indication: PRODUCT USED FOR UNKNOWN INDICATION
     Dosage: 5 MG, UNK
     Route: 065
  2. COSENTYX [Suspect]
     Active Substance: SECUKINUMAB
     Indication: PSORIATIC ARTHROPATHY
     Dosage: 300 MG, QW
     Route: 058
     Dates: start: 20160603
  3. COSENTYX [Suspect]
     Active Substance: SECUKINUMAB
     Dosage: 150 MG, QMO
     Route: 058
  4. METEX [Concomitant]
     Indication: PRODUCT USED FOR UNKNOWN INDICATION
     Dosage: 20 MG, UNK
     Route: 065
  5. L-THYROXIN WINTHROP [Concomitant]
     Indication: PRODUCT USED FOR UNKNOWN INDICATION
     Dosage: 125 UG, UNK
     Route: 065
  6. AMLODIPINE [Concomitant]
     Active Substance: AMLODIPINE BESYLATE
     Indication: PRODUCT USED FOR UNKNOWN INDICATION
     Dosage: 5 MG, UNK
     Route: 065
  7. RESTEX [Concomitant]
     Active Substance: BENSERAZIDE
     Indication: PRODUCT USED FOR UNKNOWN INDICATION
     Route: 065
  8. VALSACOR COMP [Concomitant]
     Indication: PRODUCT USED FOR UNKNOWN INDICATION
     Dosage: 160/12.5
     Route: 065

REACTIONS (1)
  - Tinnitus [Recovered/Resolved]

NARRATIVE: CASE EVENT DATE: 20160603
